FAERS Safety Report 16827295 (Version 1)
Quarter: 2019Q3

REPORT INFORMATION
  Report Type: Spontaneous
  Country: US (occurrence: US)
  Receive Date: 20190729
  Receipt Date: 20190729
  Transmission Date: 20191005
  Serious: Yes (Hospitalization)
  Sender: FDA-Public Use
  Company Number: None

PATIENT
  Age: 75 Year
  Sex: Female

DRUGS (2)
  1. ESBRIET [Suspect]
     Active Substance: PIRFENIDONE
     Indication: IDIOPATHIC PULMONARY FIBROSIS
     Dosage: ?          OTHER DOSE:3 TABS;?
     Route: 048
     Dates: start: 20170926
  2. ANORO ELLIPT AER [Concomitant]

REACTIONS (4)
  - Dizziness [None]
  - Heart rate increased [None]
  - Nausea [None]
  - Oxygen saturation decreased [None]

NARRATIVE: CASE EVENT DATE: 201907
